FAERS Safety Report 9449039 (Version 1)
Quarter: 2013Q3

REPORT INFORMATION
  Report Type: Spontaneous
  Country: RU (occurrence: None)
  Receive Date: 20130806
  Receipt Date: 20130806
  Transmission Date: 20140515
  Serious: Yes (Death)
  Sender: FDA-Public Use
  Company Number: 2013P1013650

PATIENT
  Age: 15 Year
  Sex: Male

DRUGS (3)
  1. HEPARIN [Suspect]
     Route: 042
  2. METHYLPREDNISONE [Concomitant]
  3. UNSPECIFIED ANTIMICROBIAL TREATMENT [Concomitant]

REACTIONS (2)
  - Haemorrhage intracranial [None]
  - Cardiac valve vegetation [None]
